FAERS Safety Report 15848296 (Version 6)
Quarter: 2019Q4

REPORT INFORMATION
  Report Type: Spontaneous
  Country: US (occurrence: US)
  Receive Date: 20190121
  Receipt Date: 20191217
  Transmission Date: 20200122
  Serious: No
  Sender: FDA-Public Use
  Company Number: US-PFIZER INC-2019026314

PATIENT
  Age: 29 Year
  Sex: Female

DRUGS (2)
  1. XELJANZ XR [Suspect]
     Active Substance: TOFACITINIB CITRATE
     Dosage: 11 MG
     Dates: start: 201811
  2. XELJANZ XR [Suspect]
     Active Substance: TOFACITINIB CITRATE
     Dosage: 11 MG, UNK
     Dates: start: 201912

REACTIONS (12)
  - Product dose omission [Unknown]
  - Product residue present [Unknown]
  - Pain [Unknown]
  - Sputum increased [Recovering/Resolving]
  - Joint effusion [Unknown]
  - Drug ineffective [Unknown]
  - Gait disturbance [Unknown]
  - Peripheral swelling [Not Recovered/Not Resolved]
  - Acne [Not Recovered/Not Resolved]
  - Nasopharyngitis [Unknown]
  - Gait inability [Unknown]
  - Joint swelling [Unknown]
